FAERS Safety Report 7277862-6 (Version None)
Quarter: 2011Q1

REPORT INFORMATION
  Report Type: 
  Country: None (occurrence: None)
  Receive Date: 20110207
  Receipt Date: 20110128
  Transmission Date: 20110831
  Serious: Yes (Other)
  Sender: FDA-Public Use
  Company Number: US-BAXTER-2010BH030059

PATIENT
  Sex: Female

DRUGS (2)
  1. IMMUNE GLOBULIN INTRAVENOUS (HUMAN) [Suspect]
     Indication: THROMBOCYTOPENIA NEONATAL
     Route: 065
  2. IMMUNE GLOBULIN INTRAVENOUS (HUMAN) [Suspect]
     Indication: AUTOIMMUNE THROMBOCYTOPENIA
     Route: 065

REACTIONS (1)
  - HAEMOLYSIS [None]
